FAERS Safety Report 22529906 (Version 1)
Quarter: 2023Q2

REPORT INFORMATION
  Report Type: Spontaneous
  Country: LT (occurrence: None)
  Receive Date: 20230607
  Receipt Date: 20230607
  Transmission Date: 20230722
  Serious: Yes (Hospitalization, Other)
  Sender: FDA-Public Use
  Company Number: 2023A124649

PATIENT
  Age: 74 Year
  Sex: Male

DRUGS (2)
  1. ROSUVASTATIN [Suspect]
     Active Substance: ROSUVASTATIN
     Indication: Hypercholesterolaemia
  2. ASPIRIN [Concomitant]
     Active Substance: ASPIRIN
     Indication: Myocardial ischaemia

REACTIONS (1)
  - Dermatomyositis [Recovering/Resolving]
